FAERS Safety Report 14094543 (Version 1)
Quarter: 2017Q4

REPORT INFORMATION
  Report Type: Spontaneous
  Country: US (occurrence: US)
  Receive Date: 20171016
  Receipt Date: 20171016
  Transmission Date: 20180321
  Serious: No
  Sender: FDA-Public Use
  Company Number: US-AMGEN-USASP2017031734

PATIENT
  Age: 61 Year
  Sex: Male

DRUGS (2)
  1. PROLIA [Suspect]
     Active Substance: DENOSUMAB
     Indication: OSTEOPOROSIS
     Dosage: 60 MG, UNK
     Route: 065
     Dates: start: 20160805
  2. TESTOSTERONE. [Concomitant]
     Active Substance: TESTOSTERONE
     Indication: HYPOGONADISM
     Dosage: UNK

REACTIONS (5)
  - Arthralgia [Recovering/Resolving]
  - Pain in extremity [Recovering/Resolving]
  - Inflammation [Recovering/Resolving]
  - Joint swelling [Not Recovered/Not Resolved]
  - Oedema peripheral [Recovering/Resolving]
